FAERS Safety Report 10241469 (Version 1)
Quarter: 2014Q1

REPORT INFORMATION
  Report Type: Spontaneous
  Country: US (occurrence: None)
  Receive Date: 20140306
  Receipt Date: 20140306
  Transmission Date: 20141002
  Serious: Yes (Other)
  Sender: FDA-Public Use
  Company Number: 163-21880-13062359

PATIENT
  Age: 66 Year
  Sex: Female

DRUGS (10)
  1. REVLIMID (LENALIDOMIDE) (25 MILLIGRAM, CAPSULES) [Suspect]
     Indication: PLASMA CELL MYELOMA
     Dosage: 14 IN 21 D
     Route: 048
     Dates: start: 20120926
  2. VITAMIN D3 (COLECALCIFEROL) (UNKNOWN) [Concomitant]
  3. VELCADE (BORTEZOMIB) (UNKNOWN) [Concomitant]
  4. LIPITOR (ATORVASTATIN) (TABLETS) [Concomitant]
  5. CALCIUM + VITAMIN D (LEKOVIT CA) (UNKNOWN) [Concomitant]
  6. FISH OIL (UNKNOWN) [Concomitant]
  7. POLIC ACID (TABLETS) [Concomitant]
  8. VITAMIN C (ASCORBIC ACID) (CAPSULES) [Concomitant]
  9. MAGNESIUM (TABLETS) [Concomitant]
  10. CENTRUM COMPLETE MULTIVITAMIN (TABLETS) [Concomitant]

REACTIONS (5)
  - Musculoskeletal stiffness [None]
  - Pruritus [None]
  - Headache [None]
  - Vision blurred [None]
  - Rash [None]
